FAERS Safety Report 5650536-0 (Version None)
Quarter: 2008Q1

REPORT INFORMATION
  Report Type: 
  Country: None (occurrence: None)
  Receive Date: 20080305
  Receipt Date: 20080225
  Transmission Date: 20080703
  Serious: Yes (Hospitalization, Other)
  Sender: FDA-Public Use
  Company Number: PHHY2008JP00733

PATIENT
  Age: 72 Year
  Sex: Female
  Weight: 40 kg

DRUGS (9)
  1. AKINETON [Concomitant]
     Dosage: 3 MG/DAY
     Route: 048
     Dates: start: 20060612, end: 20060617
  2. BLOPRESS [Concomitant]
     Dosage: 4 MG/DAY
     Route: 048
  3. MEVALOTIN [Concomitant]
     Dosage: 10 MG/DAY
     Route: 048
     Dates: end: 20060617
  4. UBRETID [Concomitant]
     Dosage: 10 MG/DAY
     Route: 048
     Dates: start: 20060612
  5. DEPAS [Concomitant]
     Dosage: 0.5 MG/DAY
     Route: 048
     Dates: start: 20060612
  6. MAGNESIUM OXIDE [Concomitant]
     Dosage: 0.7 G/DAY
     Route: 048
  7. ANAFRANIL [Suspect]
     Indication: DEPRESSION
     Dosage: 50 MG/DAY
     Route: 042
     Dates: start: 20060609, end: 20060612
  8. SERENACE [Suspect]
     Indication: DEPRESSION
     Dosage: 5 MG/DAY
     Route: 042
     Dates: start: 20060609, end: 20060612
  9. LUDIOMIL [Suspect]
     Indication: DEPRESSION
     Dosage: 25 MG/TID
     Route: 048
     Dates: start: 20060612, end: 20060617

REACTIONS (13)
  - ALANINE AMINOTRANSFERASE INCREASED [None]
  - ASPARTATE AMINOTRANSFERASE INCREASED [None]
  - BLOOD CREATINE PHOSPHOKINASE INCREASED [None]
  - DEHYDRATION [None]
  - ELECTROCONVULSIVE THERAPY [None]
  - HEPATIC FUNCTION ABNORMAL [None]
  - LABILE BLOOD PRESSURE [None]
  - NAUSEA [None]
  - NEUROLEPTIC MALIGNANT SYNDROME [None]
  - PYREXIA [None]
  - RHABDOMYOLYSIS [None]
  - URINARY RETENTION [None]
  - VOMITING [None]
